FAERS Safety Report 21647165 (Version 2)
Quarter: 2023Q1

REPORT INFORMATION
  Report Type: Spontaneous
  Country: US (occurrence: US)
  Receive Date: 20221127
  Receipt Date: 20230202
  Transmission Date: 20230417
  Serious: Yes (Hospitalization)
  Sender: FDA-Public Use
  Company Number: US-JNJFOC-20221152847

PATIENT
  Age: 73 Year
  Sex: Male

DRUGS (5)
  1. DARZALEX [Suspect]
     Active Substance: DARATUMUMAB
     Indication: Plasma cell myeloma refractory
     Dosage: 2.285 MILLIGRAM(S)/KILOGRAM
     Route: 041
     Dates: start: 20210219
  2. DARZALEX [Suspect]
     Active Substance: DARATUMUMAB
     Dosage: 0.533 MILLIGRAM(S)/KILOGRAM
     Route: 041
     Dates: start: 20210219
  3. DEXAMETHASONE [Suspect]
     Active Substance: DEXAMETHASONE
     Indication: Plasma cell myeloma refractory
     Route: 065
  4. POMALIDOMIDE [Suspect]
     Active Substance: POMALIDOMIDE
     Indication: Plasma cell myeloma refractory
     Dosage: 3.0 MILLIGRAM(S)
     Route: 048
     Dates: start: 20210219
  5. POMALIDOMIDE [Suspect]
     Active Substance: POMALIDOMIDE
     Dosage: 1.5 MILLIGRAM(S)
     Route: 048
     Dates: start: 20210219

REACTIONS (1)
  - Urinary tract infection [Recovered/Resolved]

NARRATIVE: CASE EVENT DATE: 20221104
